FAERS Safety Report 9265861 (Version 1)
Quarter: 2013Q2

REPORT INFORMATION
  Report Type: Spontaneous
  Country: BR (occurrence: BR)
  Receive Date: 20130501
  Receipt Date: 20130501
  Transmission Date: 20140414
  Serious: Yes (Hospitalization)
  Sender: FDA-Public Use
  Company Number: BR-ASTRAZENECA-2013SE28742

PATIENT
  Age: 77 Year
  Sex: Male
  Weight: 50 kg

DRUGS (5)
  1. CRESTOR [Suspect]
     Indication: ARTERIAL OCCLUSIVE DISEASE
     Route: 048
     Dates: start: 201303
  2. CRESTOR [Suspect]
     Indication: DEVICE OCCLUSION
     Route: 048
     Dates: start: 201303
  3. PANTOZOL [Concomitant]
  4. SOMALGIN [Concomitant]
  5. SUSTRATE [Concomitant]

REACTIONS (1)
  - Acute myocardial infarction [Recovered/Resolved]
